FAERS Safety Report 9644114 (Version 2)
Quarter: 2013Q4

REPORT INFORMATION
  Report Type: Spontaneous
  Country: DE (occurrence: DE)
  Receive Date: 20131024
  Receipt Date: 20131024
  Transmission Date: 20140711
  Serious: Yes (Disabling)
  Sender: FDA-Public Use
  Company Number: DE-009507513-1310DEU003529

PATIENT
  Age: 69 Year
  Sex: Female
  Weight: 67 kg

DRUGS (7)
  1. INEGY 10 MG/20 MG TABLETTEN [Suspect]
     Indication: HYPERCHOLESTEROLAEMIA
     Dosage: 10/20 MG, QD
     Route: 048
     Dates: start: 200510, end: 200601
  2. INEGY 10 MG/20 MG TABLETTEN [Suspect]
     Dosage: UNK
  3. INEGY 10MG/10 MG TABLETTEN [Suspect]
     Indication: BLOOD CHOLESTEROL INCREASED
     Dosage: 10 MG, QD
     Route: 048
     Dates: start: 200601, end: 20061224
  4. INEGY 10MG/10 MG TABLETTEN [Suspect]
     Indication: HYPERCHOLESTEROLAEMIA
  5. PRAVASTATIN SODIUM [Suspect]
     Indication: HYPERCHOLESTEROLAEMIA
     Dosage: 20 MG, QD
     Dates: start: 20070119, end: 20070131
  6. CELEBREX [Concomitant]
     Indication: INTERVERTEBRAL DISC PROTRUSION
     Dosage: 100 MG, BID
     Dates: start: 200404
  7. MYDOCALM (LIDOCAINE HYDROCHLORIDE (+) TOLPERISONE HYDROCHLORIDE) [Concomitant]
     Indication: INTERVERTEBRAL DISC PROTRUSION
     Dosage: UNK UNK, QD
     Dates: start: 200404, end: 200609

REACTIONS (8)
  - Muscle atrophy [Not Recovered/Not Resolved]
  - Liver function test abnormal [Not Recovered/Not Resolved]
  - Myalgia [Unknown]
  - Pain in extremity [Not Recovered/Not Resolved]
  - Pain [Not Recovered/Not Resolved]
  - Pain [Not Recovered/Not Resolved]
  - Knee deformity [Not Recovered/Not Resolved]
  - Fatigue [Not Recovered/Not Resolved]
